FAERS Safety Report 12316307 (Version 2)
Quarter: 2016Q3

REPORT INFORMATION
  Report Type: Report from Study
  Country: GB (occurrence: GB)
  Receive Date: 20160428
  Receipt Date: 20160701
  Transmission Date: 20161109
  Serious: Yes (Death, Hospitalization, Other)
  Sender: FDA-Public Use
  Company Number: GB-BRISTOL-MYERS SQUIBB COMPANY-BMS-2016-031563

PATIENT
  Age: 69 Year
  Sex: Male

DRUGS (1)
  1. NIVOLUMAB [Suspect]
     Active Substance: NIVOLUMAB
     Indication: SQUAMOUS CELL CARCINOMA OF LUNG
     Dosage: 240 MG, UNK
     Route: 042
     Dates: start: 20151214, end: 20160301

REACTIONS (4)
  - Fall [Unknown]
  - Malignant neoplasm progression [Fatal]
  - Hip fracture [Unknown]
  - Hip surgery [Unknown]

NARRATIVE: CASE EVENT DATE: 20160421
